FAERS Safety Report 8059954-7 (Version None)
Quarter: 2012Q1

REPORT INFORMATION
  Report Type: 
  Country: None (occurrence: None)
  Receive Date: 20120120
  Receipt Date: 20120115
  Transmission Date: 20120608
  Serious: Yes (Death)
  Sender: FDA-Public Use
  Company Number: PHHY2012MX004416

PATIENT

DRUGS (2)
  1. CYCLOSPORINE [Suspect]
     Indication: CHRONIC GRAFT VERSUS HOST DISEASE
  2. STEROIDS [Suspect]
     Indication: CHRONIC GRAFT VERSUS HOST DISEASE

REACTIONS (2)
  - DRUG RESISTANCE [None]
  - PNEUMONIA [None]
